FAERS Safety Report 7462240-7 (Version None)
Quarter: 2011Q2

REPORT INFORMATION
  Report Type: 
  Country: None (occurrence: None)
  Receive Date: 20110506
  Receipt Date: 20101202
  Transmission Date: 20111010
  Serious: No
  Sender: FDA-Public Use
  Company Number: US-BAYER-2010-008019

PATIENT
  Age: 26 Year
  Sex: Female

DRUGS (2)
  1. AVELOX [Suspect]
     Indication: INFECTION
     Dosage: 400 MG, QD
     Route: 048
     Dates: start: 20101201, end: 20101201
  2. YAZ [Concomitant]

REACTIONS (4)
  - RASH ERYTHEMATOUS [None]
  - HYPERSENSITIVITY [None]
  - RASH [None]
  - PRURITUS [None]
